FAERS Safety Report 4635339-8 (Version None)
Quarter: 2005Q2

REPORT INFORMATION
  Report Type: 
  Country: None (occurrence: None)
  Receive Date: 20050411
  Receipt Date: 20050331
  Transmission Date: 20051028
  Serious: Yes (Other)
  Sender: FDA-Public Use
  Company Number: A-CH2005-09355

PATIENT
  Age: 43 Year
  Sex: 0

DRUGS (1)
  1. TRACLEER [Suspect]
     Indication: PULMONARY HYPERTENSION
     Dosage: 125 MG, BID, ORAL
     Route: 048
     Dates: start: 20031013, end: 20050317

REACTIONS (2)
  - OFF LABEL USE [None]
  - TRANSPLANT [None]
